FAERS Safety Report 6781843-6 (Version None)
Quarter: 2010Q2

REPORT INFORMATION
  Report Type: 
  Country: None (occurrence: None)
  Receive Date: 20100621
  Receipt Date: 20100610
  Transmission Date: 20101027
  Serious: Yes (Hospitalization, Other)
  Sender: FDA-Public Use
  Company Number: PHHY2010US38796

PATIENT
  Sex: Female
  Weight: 75.283 kg

DRUGS (1)
  1. VIVELLE-DOT [Suspect]
     Indication: MENOPAUSE
     Dosage: 0.1 MG
     Route: 062
     Dates: start: 20080425

REACTIONS (5)
  - CRYING [None]
  - DRUG LEVEL DECREASED [None]
  - HOT FLUSH [None]
  - PALPITATIONS [None]
  - STRESS [None]
